FAERS Safety Report 8534001-9 (Version None)
Quarter: 2012Q2

REPORT INFORMATION
  Report Type: 
  Country: None (occurrence: None)
  Receive Date: 20120412
  Receipt Date: 20090313
  Transmission Date: 20120825
  Serious: Yes (Hospitalization)
  Sender: FDA-Public Use
  Company Number: PHEH2009US02616

PATIENT

DRUGS (1)
  1. CLOZARIL [Suspect]
     Dosage: ORAL
     Route: 048

REACTIONS (1)
  - NEUTROPHIL COUNT DECREASED [None]
